FAERS Safety Report 8200136-3 (Version None)
Quarter: 2012Q1

REPORT INFORMATION
  Report Type: 
  Country: None (occurrence: None)
  Receive Date: 20120312
  Receipt Date: 20120301
  Transmission Date: 20120608
  Serious: Yes (Hospitalization, Other)
  Sender: FDA-Public Use
  Company Number: US-BAYER-2011-076120

PATIENT
  Sex: Female
  Weight: 73 kg

DRUGS (5)
  1. YAZ [Suspect]
     Indication: CONTRACEPTION
     Dosage: UNK
     Dates: start: 20081201, end: 20090801
  2. TORADOL [Concomitant]
     Dosage: UNK UNK, PRN
     Dates: start: 20091008
  3. MELOXICAM [Concomitant]
     Indication: ARTHRITIS
     Dosage: UNK
     Dates: start: 20090301, end: 20090601
  4. LEXAPRO [Concomitant]
     Indication: DEPRESSION
     Dosage: UNK
     Dates: start: 20081201, end: 20100601
  5. HYDROCODONE BITARTRATE [Concomitant]
     Dosage: 7.5/500MG
     Dates: start: 20090925

REACTIONS (9)
  - ABDOMINAL PAIN UPPER [None]
  - EMOTIONAL DISTRESS [None]
  - FEAR OF DISEASE [None]
  - CHOLECYSTITIS CHRONIC [None]
  - PAIN [None]
  - ANXIETY [None]
  - PSYCHOLOGICAL TRAUMA [None]
  - CHOLELITHIASIS [None]
  - INJURY [None]
